FAERS Safety Report 4957049-X (Version None)
Quarter: 2006Q1

REPORT INFORMATION
  Report Type: 
  Country: None (occurrence: None)
  Receive Date: 20060323
  Receipt Date: 20060314
  Transmission Date: 20060701
  Serious: Yes (Life-Threatening, Hospitalization, Other)
  Sender: FDA-Public Use
  Company Number: 2006-03-0232

PATIENT
  Age: 46 Year
  Sex: Male
  Weight: 120.6568 kg

DRUGS (2)
  1. PEG-INTRON [Suspect]
     Indication: HEPATITIS C
     Dosage: 0.4 ML QWK SUBCUTANEOUS
     Route: 058
  2. LISINOPRIL ORALS [Concomitant]

REACTIONS (11)
  - AGITATION [None]
  - ANEURYSM RUPTURED [None]
  - COGNITIVE DISORDER [None]
  - DUODENITIS [None]
  - HYDROCEPHALUS [None]
  - HYPONATRAEMIA [None]
  - LOSS OF CONSCIOUSNESS [None]
  - MEMORY IMPAIRMENT [None]
  - PNEUMONIA [None]
  - SUBARACHNOID HAEMORRHAGE [None]
  - UPPER GASTROINTESTINAL HAEMORRHAGE [None]
